FAERS Safety Report 8011112-8 (Version None)
Quarter: 2011Q4

REPORT INFORMATION
  Report Type: 
  Country: None (occurrence: None)
  Receive Date: 20111228
  Receipt Date: 20110905
  Transmission Date: 20120403
  Serious: Yes (Death, Other)
  Sender: FDA-Public Use
  Company Number: GB-ROCHE-GNE322821

PATIENT
  Sex: Male
  Weight: 64.059 kg

DRUGS (1)
  1. LUCENTIS [Suspect]
     Indication: PRODUCT USED FOR UNKNOWN INDICATION
     Route: 050

REACTIONS (5)
  - DEATH [None]
  - CARDIOVASCULAR DISORDER [None]
  - BRONCHOPNEUMONIA [None]
  - DISEASE PROGRESSION [None]
  - ASPIRATION [None]
